FAERS Safety Report 9860915 (Version 1)
Quarter: 2014Q1

REPORT INFORMATION
  Report Type: Spontaneous
  Country: AU (occurrence: AU)
  Receive Date: 20140202
  Receipt Date: 20140202
  Transmission Date: 20141002
  Serious: No
  Sender: FDA-Public Use
  Company Number: AU-ALLERGAN-1302198US

PATIENT
  Sex: 0

DRUGS (1)
  1. BOTOX [Suspect]
     Indication: DROOLING
     Dosage: UNK, SINGLE
     Route: 050

REACTIONS (2)
  - Off label use [Unknown]
  - Dry mouth [Unknown]
